FAERS Safety Report 6642954-9 (Version None)
Quarter: 2010Q1

REPORT INFORMATION
  Report Type: 
  Country: None (occurrence: None)
  Receive Date: 20100319
  Receipt Date: 20100309
  Transmission Date: 20100710
  Serious: Yes (Hospitalization)
  Sender: FDA-Public Use
  Company Number: SG-PFIZER INC-2008019898

PATIENT
  Age: 59 Year
  Sex: Female

DRUGS (20)
  1. BLINDED *NO SUBJECT DRUG [Suspect]
     Indication: CARDIAC FAILURE
     Route: 048
     Dates: start: 20080214, end: 20080229
  2. BLINDED *PLACEBO [Suspect]
     Indication: CARDIAC FAILURE
     Route: 048
     Dates: start: 20080214, end: 20080229
  3. BLINDED EPLERENONE [Suspect]
     Indication: CARDIAC FAILURE
     Route: 048
     Dates: start: 20080214, end: 20080229
  4. BLINDED *NO SUBJECT DRUG [Suspect]
     Route: 048
     Dates: start: 20080312
  5. BLINDED *PLACEBO [Suspect]
     Route: 048
     Dates: start: 20080312
  6. BLINDED EPLERENONE [Suspect]
     Route: 048
     Dates: start: 20080312
  7. VALSARTAN [Concomitant]
     Route: 048
     Dates: start: 20070416
  8. BISOPROLOL [Concomitant]
     Route: 048
     Dates: start: 20050826
  9. FRUSEMIDE [Concomitant]
     Route: 048
     Dates: start: 20050812
  10. DIGOXIN [Concomitant]
     Route: 048
     Dates: start: 20071219
  11. WARFARIN SODIUM [Concomitant]
     Route: 048
     Dates: start: 20050826
  12. GLIPIZIDE [Concomitant]
     Route: 048
     Dates: start: 20050716
  13. METFORMIN [Concomitant]
     Route: 048
     Dates: start: 20050812
  14. VITAMIN B COMPLEX CAP [Concomitant]
     Route: 048
     Dates: start: 20071216
  15. POTASSIUM [Concomitant]
     Route: 048
     Dates: start: 20071217
  16. MAGNESIUM TRISILICATE [Concomitant]
     Route: 048
     Dates: start: 20071221
  17. OMEPRAZOLE [Concomitant]
     Route: 048
     Dates: start: 20050717
  18. VYTORIN [Concomitant]
     Route: 048
     Dates: start: 20071216
  19. POTASSIUM CHLORIDE [Concomitant]
     Route: 048
     Dates: start: 20080229, end: 20080301
  20. SPAN-K [Concomitant]
     Route: 048
     Dates: start: 20080301, end: 20080306

REACTIONS (4)
  - CARDIAC FAILURE [None]
  - CONDITION AGGRAVATED [None]
  - UPPER RESPIRATORY TRACT INFECTION [None]
  - VERTIGO [None]
